FAERS Safety Report 7327206-6 (Version None)
Quarter: 2011Q1

REPORT INFORMATION
  Report Type: 
  Country: None (occurrence: None)
  Receive Date: 20110302
  Receipt Date: 20110217
  Transmission Date: 20110831
  Serious: No
  Sender: FDA-Public Use
  Company Number: US-ASTRAZENECA-2011SE01371

PATIENT
  Age: 87 Year
  Sex: Male

DRUGS (5)
  1. SYMBICORT [Suspect]
     Dosage: 160/4.5 MCG
     Route: 055
  2. BENICAR [Concomitant]
  3. COUMADIN [Concomitant]
  4. STOMACH MEDICATIONS [Concomitant]
  5. EYE DROPS [Concomitant]

REACTIONS (1)
  - DYSPNOEA [None]
